FAERS Safety Report 8461925 (Version 3)
Quarter: 2013Q2

REPORT INFORMATION
  Report Type: Report from Study
  Country: US (occurrence: US)
  Receive Date: 20120315
  Receipt Date: 20130502
  Transmission Date: 20140414
  Serious: Yes (Other)
  Sender: FDA-Public Use
  Company Number: PHHY2011US15736

PATIENT
  Age: 63 Year
  Sex: Female

DRUGS (7)
  1. GILENYA [Suspect]
     Indication: MULTIPLE SCLEROSIS
     Dosage: 0.5 MG, QD
     Route: 048
     Dates: start: 20110210
  2. THYROID HORMONES [Concomitant]
     Dosage: UNK UKN, UNK
  3. CALTRATE [Concomitant]
  4. SIMVASTATIN [Concomitant]
  5. OMEGA 3 FISH OIL [Concomitant]
  6. LEVOTHYROXINE [Concomitant]
  7. VITAMIN D [Concomitant]

REACTIONS (7)
  - Osteoporosis [Unknown]
  - Amnesia [Unknown]
  - Fatigue [Unknown]
  - Weight increased [Unknown]
  - Fall [Unknown]
  - Influenza [Unknown]
  - Nasopharyngitis [Unknown]
